FAERS Safety Report 4672472-9 (Version None)
Quarter: 2005Q2

REPORT INFORMATION
  Report Type: 
  Country: None (occurrence: None)
  Receive Date: 20050524
  Receipt Date: 20050516
  Transmission Date: 20051028
  Serious: Yes (Other)
  Sender: FDA-Public Use
  Company Number: MX-BOEHRINGER INGELHEIM PHARMACEUTICALS, INC.-2005-BP-08089MX

PATIENT
  Age: 77 Year
  Sex: Male

DRUGS (2)
  1. SECOTEX CAPSULES 0.4MG [Suspect]
     Indication: BENIGN PROSTATIC HYPERPLASIA
     Route: 048
     Dates: start: 20041108, end: 20050201
  2. SECOTEX CAPSULES 0.4MG [Suspect]
     Indication: PROSTATITIS

REACTIONS (1)
  - PROSTATE CANCER [None]
